FAERS Safety Report 9080865 (Version 1)
Quarter: 2013Q1

REPORT INFORMATION
  Report Type: Report from Study
  Country: US (occurrence: US)
  Receive Date: 20130130
  Receipt Date: 20130130
  Transmission Date: 20140127
  Serious: No
  Sender: FDA-Public Use
  Company Number: US-ABBOTT-12P-163-0973437-00

PATIENT
  Age: 67 Year
  Sex: Male

DRUGS (7)
  1. HUMIRA 40 MG/0.8 ML PEN [Suspect]
     Indication: RHEUMATOID ARTHRITIS
     Dates: start: 20110202
  2. METHOTREXATE [Concomitant]
     Indication: RHEUMATOID ARTHRITIS
  3. CLONOPIN [Concomitant]
     Indication: PRODUCT USED FOR UNKNOWN INDICATION
  4. LOTREL [Concomitant]
     Indication: PRODUCT USED FOR UNKNOWN INDICATION
  5. VENLAFAXINE [Concomitant]
     Indication: PRODUCT USED FOR UNKNOWN INDICATION
  6. FOLIC ACID [Concomitant]
     Indication: PRODUCT USED FOR UNKNOWN INDICATION
  7. BYSTOLIC [Concomitant]
     Indication: HYPERTENSION

REACTIONS (3)
  - Wheezing [Recovered/Resolved]
  - Respiratory tract infection [Recovered/Resolved]
  - Sputum discoloured [Recovered/Resolved]
